FAERS Safety Report 26000631 (Version 1)
Quarter: 2025Q4

REPORT INFORMATION
  Report Type: Spontaneous
  Country: JP (occurrence: JP)
  Receive Date: 20251105
  Receipt Date: 20251105
  Transmission Date: 20260118
  Serious: Yes (Hospitalization)
  Sender: ALEXION PHARMACEUTICALS
  Company Number: JP-AstraZeneca-CH-00981788A

PATIENT

DRUGS (3)
  1. FASENRA [Suspect]
     Active Substance: BENRALIZUMAB
     Dosage: UNK
     Route: 065
  2. FASENRA [Suspect]
     Active Substance: BENRALIZUMAB
  3. SYMBICORT [Suspect]
     Active Substance: BUDESONIDE\FORMOTEROL FUMARATE DIHYDRATE
     Dosage: UNK
     Route: 065

REACTIONS (15)
  - Oxygen saturation decreased [Unknown]
  - Asthma [Unknown]
  - Urticaria [Unknown]
  - Headache [Unknown]
  - Ocular hyperaemia [Unknown]
  - Nasopharyngitis [Unknown]
  - Eyelid oedema [Unknown]
  - Tinnitus [Unknown]
  - Productive cough [Unknown]
  - Pulmonary imaging procedure abnormal [Unknown]
  - COVID-19 [Unknown]
  - Eosinophil count increased [Unknown]
  - Rhinitis [Unknown]
  - Illness [Unknown]
  - Product use issue [Unknown]
